FAERS Safety Report 9832613 (Version 2)
Quarter: 2014Q1

REPORT INFORMATION
  Report Type: Spontaneous
  Country: US (occurrence: US)
  Receive Date: 20140121
  Receipt Date: 20140121
  Transmission Date: 20141002
  Serious: Yes (Hospitalization, Other)
  Sender: FDA-Public Use
  Company Number: US-PFIZER INC-2013288670

PATIENT
  Age: 58 Year
  Sex: Female

DRUGS (5)
  1. ENBREL [Suspect]
     Indication: RHEUMATOID ARTHRITIS
     Dosage: 25 MG, 2 TIMES/WK
     Dates: start: 20021101, end: 201303
  2. ENBREL [Suspect]
     Dosage: 25 MG, 2 TIMES/WK
     Dates: start: 2013, end: 2013
  3. ENBREL [Suspect]
     Dosage: 25 MG, 2 TIMES/WK
     Dates: start: 201309
  4. ENBREL [Suspect]
     Dosage: UNK
  5. METHOTREXATE SODIUM [Suspect]
     Dosage: 15 MG, QWK FOR 21 OR 22 YEARS.
     Route: 030

REACTIONS (13)
  - Renal cancer [Recovered/Resolved]
  - Abasia [Recovered/Resolved]
  - Rheumatoid arthritis [Recovered/Resolved]
  - Fatigue [Recovered/Resolved]
  - Asthenia [Recovered/Resolved]
  - Red blood cell sedimentation rate abnormal [Not Recovered/Not Resolved]
  - Joint swelling [Not Recovered/Not Resolved]
  - Arthralgia [Not Recovered/Not Resolved]
  - Mobility decreased [Not Recovered/Not Resolved]
  - Headache [Not Recovered/Not Resolved]
  - Alopecia [Not Recovered/Not Resolved]
  - Bronchitis [Recovered/Resolved]
  - Injection site pain [Not Recovered/Not Resolved]
